FAERS Safety Report 4402725-0 (Version None)
Quarter: 2004Q3

REPORT INFORMATION
  Report Type: 
  Country: None (occurrence: None)
  Receive Date: 20040721
  Receipt Date: 20030716
  Transmission Date: 20050211
  Serious: No
  Sender: FDA-Public Use
  Company Number: US-BRISTOL-MYERS SQUIBB COMPANY-12387379

PATIENT
  Age: 59 Year
  Sex: Female

DRUGS (1)
  1. ESTRACE [Suspect]
     Indication: FLUSHING
     Route: 048
     Dates: start: 19950101, end: 20030101

REACTIONS (1)
  - DRUG INEFFECTIVE [None]
